FAERS Safety Report 7457345-0 (Version None)
Quarter: 2011Q2

REPORT INFORMATION
  Report Type: 
  Country: None (occurrence: None)
  Receive Date: 20110504
  Receipt Date: 20101129
  Transmission Date: 20111010
  Serious: No
  Sender: FDA-Public Use
  Company Number: US-KINGPHARMUSA00001-K201001452

PATIENT
  Sex: Male

DRUGS (5)
  1. AVINZA [Suspect]
     Dosage: 90 MG, BID
     Route: 048
     Dates: end: 20100801
  2. ROXICODONE [Concomitant]
     Indication: PAIN
     Dosage: 30 MG, 6 TIMES A DAY
     Route: 048
  3. AVINZA [Suspect]
     Indication: PAIN
     Dosage: 90 MG, QD
     Route: 048
     Dates: start: 20100801, end: 20101001
  4. TIZANIDINE [Concomitant]
     Dosage: 4 MG, UNK
     Route: 048
  5. DIAZEPAM [Concomitant]
     Dosage: 10 MG, UNK
     Route: 048

REACTIONS (3)
  - DRUG INEFFECTIVE [None]
  - DYSPNOEA [None]
  - PANIC ATTACK [None]
